FAERS Safety Report 9161618 (Version 1)
Quarter: 2013Q1

REPORT INFORMATION
  Report Type: Spontaneous
  Country: GB (occurrence: GB)
  Receive Date: 20130313
  Receipt Date: 20130313
  Transmission Date: 20140127
  Serious: Yes (Other)
  Sender: FDA-Public Use
  Company Number: GB-ELI_LILLY_AND_COMPANY-GB201303001744

PATIENT
  Sex: Male

DRUGS (1)
  1. HUMALOG 25% LISPRO, 75% NPL [Suspect]
     Dosage: UNK, UNKNOWN

REACTIONS (4)
  - Injection site pain [Unknown]
  - Injection site vesicles [Unknown]
  - Injection site nodule [Unknown]
  - Injection site erythema [Unknown]
